FAERS Safety Report 19749381 (Version 1)
Quarter: 2021Q3

REPORT INFORMATION
  Report Type: Spontaneous
  Country: US (occurrence: US)
  Receive Date: 20210826
  Receipt Date: 20210826
  Transmission Date: 20211014
  Serious: No
  Sender: FDA-Public Use
  Company Number: US-BIOGEN-2021BI00968598

PATIENT
  Sex: Female

DRUGS (4)
  1. VUMERITY [Suspect]
     Active Substance: DIROXIMEL FUMARATE
     Route: 065
     Dates: start: 20210107
  2. VUMERITY [Suspect]
     Active Substance: DIROXIMEL FUMARATE
     Dosage: MAINTENANCE DOSE
     Route: 065
     Dates: start: 20210115
  3. TECFIDERA [Suspect]
     Active Substance: DIMETHYL FUMARATE
     Indication: MULTIPLE SCLEROSIS
     Route: 065
  4. VUMERITY [Suspect]
     Active Substance: DIROXIMEL FUMARATE
     Indication: MULTIPLE SCLEROSIS
     Dosage: STARTER DOSE
     Route: 065
     Dates: start: 20210108, end: 20210114

REACTIONS (11)
  - Gait disturbance [Unknown]
  - Tremor [Unknown]
  - Back pain [Unknown]
  - Flushing [Unknown]
  - Urinary retention [Unknown]
  - Urinary incontinence [Unknown]
  - Multiple sclerosis [Unknown]
  - Renal mass [Unknown]
  - Lumbar radiculopathy [Unknown]
  - Muscular weakness [Unknown]
  - Dysstasia [Unknown]
